FAERS Safety Report 4620556-3 (Version None)
Quarter: 2005Q1

REPORT INFORMATION
  Report Type: 
  Country: None (occurrence: None)
  Receive Date: 20050324
  Receipt Date: 20050307
  Transmission Date: 20050727
  Serious: Yes (Hospitalization)
  Sender: FDA-Public Use
  Company Number: 2005-BP-02282BP

PATIENT
  Age: 77 Year
  Sex: Male

DRUGS (4)
  1. CATAPRES [Suspect]
     Indication: HYPERTENSION
     Dosage: 0.3 MG (7.5 MG, ONE PATCH Q WEEK), TO
     Route: 061
     Dates: start: 20041001
  2. COUMADIN [Concomitant]
  3. LISINOPRIL [Concomitant]
  4. HYDROCHLOROTHIAZIDE [Concomitant]

REACTIONS (5)
  - DRUG EFFECT DECREASED [None]
  - GASTROINTESTINAL HAEMORRHAGE [None]
  - HAEMATOCRIT DECREASED [None]
  - HAEMOGLOBIN DECREASED [None]
  - HYPERTENSION [None]
